FAERS Safety Report 10056077 (Version 1)
Quarter: 2014Q2

REPORT INFORMATION
  Report Type: Spontaneous
  Country: CH (occurrence: CH)
  Receive Date: 20140403
  Receipt Date: 20140403
  Transmission Date: 20141212
  Serious: Yes (Other)
  Sender: FDA-Public Use
  Company Number: CH-ASTELLAS-2014EU003400

PATIENT
  Age: 65 Year
  Sex: Male

DRUGS (1)
  1. VESICARE 10 MG [Suspect]
     Indication: HYPERTONIC BLADDER
     Dosage: 10 MG, UID/QD
     Route: 065
     Dates: start: 20140317, end: 20140319

REACTIONS (1)
  - Dyspnoea [Recovered/Resolved]
